FAERS Safety Report 19964765 (Version 2)
Quarter: 2021Q4

REPORT INFORMATION
  Report Type: Spontaneous
  Country: GB (occurrence: GB)
  Receive Date: 20211018
  Receipt Date: 20211027
  Transmission Date: 20220303
  Serious: Yes (Hospitalization, Other)
  Sender: FDA-Public Use
  Company Number: GB-MLMSERVICE-20211004-3094512-1

PATIENT
  Sex: Female

DRUGS (4)
  1. SERTRALINE HYDROCHLORIDE [Suspect]
     Active Substance: SERTRALINE HYDROCHLORIDE
     Indication: Panic attack
     Dosage: 50 MG TABLET IN HALF/TAKING WHOLE 50 MG TABLET TO MAKE DOSE 75 MG
  2. SERTRALINE HYDROCHLORIDE [Suspect]
     Active Substance: SERTRALINE HYDROCHLORIDE
     Indication: Anxiety
     Dosage: 50 MG, 1X/DAY
  3. SERTRALINE HYDROCHLORIDE [Suspect]
     Active Substance: SERTRALINE HYDROCHLORIDE
     Indication: Depression
     Dosage: 100 MG, 1X/DAY
  4. HUMAN IMMUNOGLOBULIN G [Concomitant]
     Active Substance: HUMAN IMMUNOGLOBULIN G
     Indication: Infection
     Dosage: UNK
     Route: 058

REACTIONS (7)
  - Abdominal distension [Not Recovered/Not Resolved]
  - Constipation [Not Recovered/Not Resolved]
  - Faecaloma [Unknown]
  - Withdrawal syndrome [Recovering/Resolving]
  - Drug ineffective [Not Recovered/Not Resolved]
  - Mental impairment [Recovering/Resolving]
  - Lacrimation increased [Unknown]
